FAERS Safety Report 5027254-5 (Version None)
Quarter: 2006Q2

REPORT INFORMATION
  Report Type: 
  Country: None (occurrence: None)
  Receive Date: 20060612
  Receipt Date: 20060530
  Transmission Date: 20061013
  Serious: Yes (Other)
  Sender: FDA-Public Use
  Company Number: HQWYE552723JAN04

PATIENT
  Age: 61 Year
  Sex: Female

DRUGS (1)
  1. PREMPRO [Suspect]

REACTIONS (4)
  - BREAST CANCER METASTATIC [None]
  - LIVER DISORDER [None]
  - METASTASES TO LYMPH NODES [None]
  - SPLEEN DISORDER [None]
